FAERS Safety Report 7217991-6 (Version None)
Quarter: 2011Q1

REPORT INFORMATION
  Report Type: 
  Country: None (occurrence: None)
  Receive Date: 20110110
  Receipt Date: 20110104
  Transmission Date: 20110831
  Serious: Yes (Hospitalization)
  Sender: FDA-Public Use
  Company Number: B0691945A

PATIENT
  Sex: Male

DRUGS (9)
  1. ORNITHINE OXOGLURATE [Concomitant]
     Route: 065
  2. ROCEPHIN [Concomitant]
     Dosage: 2G PER DAY
     Route: 065
     Dates: start: 20101221, end: 20101222
  3. AUGMENTIN '125' [Suspect]
     Dosage: 1G THREE TIMES PER DAY
     Route: 042
     Dates: start: 20101220, end: 20101221
  4. SKENAN LP [Concomitant]
     Dosage: 50MG TWICE PER DAY
     Route: 065
  5. FLAGYL [Concomitant]
     Dosage: 500MG THREE TIMES PER DAY
     Route: 065
     Dates: start: 20101221
  6. EUPANTOL [Concomitant]
     Dosage: 20MG AT NIGHT
     Route: 065
  7. TAVANIC [Concomitant]
     Dosage: 500MG PER DAY
     Route: 048
     Dates: start: 20101220, end: 20101221
  8. GEMZAR [Concomitant]
     Route: 065
     Dates: start: 20101216
  9. EUROBIOL [Concomitant]
     Dosage: 25000IU THREE TIMES PER DAY
     Route: 065

REACTIONS (5)
  - TOXIC SKIN ERUPTION [None]
  - RASH PRURITIC [None]
  - RASH SCARLATINIFORM [None]
  - ENANTHEMA [None]
  - SKIN EXFOLIATION [None]
